FAERS Safety Report 4601853-4 (Version None)
Quarter: 2005Q1

REPORT INFORMATION
  Report Type: 
  Country: None (occurrence: None)
  Receive Date: 20050131
  Receipt Date: 20041208
  Transmission Date: 20050727
  Serious: Yes (Other)
  Sender: FDA-Public Use
  Company Number: 200419403US

PATIENT
  Age: 45 Year
  Sex: Female

DRUGS (1)
  1. KETEK [Suspect]
     Indication: PNEUMONIA PRIMARY ATYPICAL

REACTIONS (1)
  - ANGIONEUROTIC OEDEMA [None]
